FAERS Safety Report 18413431 (Version 3)
Quarter: 2021Q1

REPORT INFORMATION
  Report Type: Report from Study
  Country: FR (occurrence: FR)
  Receive Date: 20201022
  Receipt Date: 20210209
  Transmission Date: 20210419
  Serious: Yes (Death, Life-Threatening, Hospitalization, Other)
  Sender: FDA-Public Use
  Company Number: FR-ADVANZ PHARMA-202010009577

PATIENT

DRUGS (4)
  1. DEXAMETHASONE. [Concomitant]
     Active Substance: DEXAMETHASONE
     Dosage: UNK
     Dates: start: 20200326, end: 20200328
  2. ROCEPHINE [Concomitant]
     Active Substance: CEFTRIAXONE SODIUM
     Indication: LUNG DISORDER
     Dosage: UNK
     Dates: start: 20200325, end: 20200328
  3. HYDROXYCHLOROQUINE SULFATE (AUTHORIZED GENERIC),PLAQUENIL [Suspect]
     Active Substance: HYDROXYCHLOROQUINE SULFATE
     Indication: COVID-19
     Dosage: 400 MG, QD, FILM?COATED TABLET
     Route: 048
     Dates: start: 20200327, end: 20200328
  4. ROVAMYCINE [Concomitant]
     Active Substance: SPIRAMYCIN
     Indication: LUNG DISORDER
     Dosage: UNK
     Dates: start: 20200325, end: 20200328

REACTIONS (2)
  - Off label use [Unknown]
  - Acute respiratory distress syndrome [Fatal]

NARRATIVE: CASE EVENT DATE: 20200327
